FAERS Safety Report 22279446 (Version 4)
Quarter: 2023Q4

REPORT INFORMATION
  Report Type: Spontaneous
  Country: IN (occurrence: IN)
  Receive Date: 20230503
  Receipt Date: 20231205
  Transmission Date: 20240110
  Serious: Yes (Other)
  Sender: FDA-Public Use
  Company Number: IN-PFIZER INC-PV202300076708

PATIENT
  Age: 74 Year
  Sex: Male

DRUGS (4)
  1. CRIZOTINIB [Suspect]
     Active Substance: CRIZOTINIB
     Indication: Lung adenocarcinoma
     Dosage: 250 MG, 2X/DAY
     Route: 048
  2. GOSERELIN [Concomitant]
     Active Substance: GOSERELIN
     Dosage: 10.8 S/C 3 MONTHLY
     Route: 058
  3. DENUB [Concomitant]
     Dosage: 60 MG S/C-6 MONTHLY
     Route: 058
  4. CALCIUM\CHOLECALCIFEROL [Concomitant]
     Active Substance: CALCIUM\CHOLECALCIFEROL
     Dosage: 500 1 OD

REACTIONS (10)
  - Blood pressure increased [Recovering/Resolving]
  - Oxygen saturation decreased [Unknown]
  - Asthenia [Unknown]
  - Fatigue [Unknown]
  - Vitamin D decreased [Unknown]
  - Glycosylated haemoglobin increased [Unknown]
  - Blood thyroid stimulating hormone increased [Unknown]
  - Dysplasia [Unknown]
  - Pallor [Unknown]
  - Hyporeflexia [Unknown]

NARRATIVE: CASE EVENT DATE: 20230425
